FAERS Safety Report 14663311 (Version 1)
Quarter: 2018Q1

REPORT INFORMATION
  Report Type: Spontaneous
  Country: US (occurrence: US)
  Receive Date: 20180321
  Receipt Date: 20180321
  Transmission Date: 20180509
  Serious: Yes (Hospitalization)
  Sender: FDA-Public Use
  Company Number: PHHY2018US039536

PATIENT
  Age: 68 Year
  Sex: Female

DRUGS (2)
  1. GATIFLOXACIN. [Suspect]
     Active Substance: GATIFLOXACIN
     Indication: CONJUNCTIVITIS
  2. GATIFLOXACIN. [Suspect]
     Active Substance: GATIFLOXACIN
     Indication: BLEBITIS
     Dosage: UNK UNK, Q2H
     Route: 047

REACTIONS (5)
  - Rectal tenesmus [Recovered/Resolved]
  - Diarrhoea [Recovered/Resolved]
  - Diarrhoea infectious [Recovered/Resolved]
  - Clostridium difficile colitis [Recovered/Resolved]
  - Abdominal pain lower [Recovered/Resolved]
